FAERS Safety Report 10462017 (Version 7)
Quarter: 2015Q3

REPORT INFORMATION
  Report Type: Report from Study
  Country: US (occurrence: US)
  Receive Date: 20140918
  Receipt Date: 20150923
  Transmission Date: 20151125
  Serious: Yes (Other)
  Sender: FDA-Public Use
  Company Number: US-SA-2014SA065211

PATIENT
  Age: 58 Year
  Sex: Female
  Weight: 50.8 kg

DRUGS (12)
  1. AUBAGIO [Suspect]
     Active Substance: TERIFLUNOMIDE
     Indication: MULTIPLE SCLEROSIS
     Route: 048
     Dates: start: 20140318, end: 20140415
  2. CARVEDILOL. [Concomitant]
     Active Substance: CARVEDILOL
     Indication: RENAL DISORDER
  3. ZEMPLAR [Concomitant]
     Active Substance: PARICALCITOL
     Indication: RENAL DISORDER
     Dosage: 3 PER WEEK
  4. NORVASC [Concomitant]
     Active Substance: AMLODIPINE BESYLATE
  5. AUBAGIO [Suspect]
     Active Substance: TERIFLUNOMIDE
     Indication: MULTIPLE SCLEROSIS
     Route: 048
     Dates: start: 20140416
  6. ALLOPURINOL. [Concomitant]
     Active Substance: ALLOPURINOL
     Indication: RENAL DISORDER
  7. OMEPRAZOLE. [Concomitant]
     Active Substance: OMEPRAZOLE
     Indication: RENAL DISORDER
  8. FERROUS SULFATE [Concomitant]
     Active Substance: FERROUS SULFATE\FERROUS SULFATE, DRIED
  9. HYDRALAZINE [Concomitant]
     Active Substance: HYDRALAZINE HYDROCHLORIDE
     Indication: RENAL DISORDER
  10. AUBAGIO [Suspect]
     Active Substance: TERIFLUNOMIDE
     Indication: MULTIPLE SCLEROSIS
     Route: 048
     Dates: start: 20140221
  11. CYCLOSPORINE. [Concomitant]
     Active Substance: CYCLOSPORINE
     Indication: RENAL DISORDER
  12. VITAMIN D [Concomitant]
     Active Substance: CHOLECALCIFEROL
     Dosage: 2000 DAILY

REACTIONS (7)
  - Limb discomfort [Unknown]
  - Nerve compression [Unknown]
  - Diarrhoea [Recovered/Resolved]
  - Headache [Recovered/Resolved]
  - Pain in extremity [Unknown]
  - Pain in extremity [Not Recovered/Not Resolved]
  - Syncope [Recovering/Resolving]

NARRATIVE: CASE EVENT DATE: 2014
